FAERS Safety Report 4777362-9 (Version None)
Quarter: 2005Q3

REPORT INFORMATION
  Report Type: 
  Country: None (occurrence: None)
  Receive Date: 20050923
  Receipt Date: 20050915
  Transmission Date: 20060218
  Serious: Yes (Hospitalization)
  Sender: FDA-Public Use
  Company Number: PHBS2005GB13626

PATIENT
  Age: 54 Year
  Sex: Male

DRUGS (13)
  1. CARBAMAZEPINE [Suspect]
     Indication: BIPOLAR DISORDER
     Route: 048
  2. CARBAMAZEPINE [Suspect]
     Dosage: 500 MG, BID
     Route: 048
  3. CARBAMAZEPINE [Suspect]
     Dosage: 800 MG, BID
     Route: 048
  4. LITHIUM [Concomitant]
  5. IMIPRAMINE [Concomitant]
  6. HALOPERIDOL [Concomitant]
     Dosage: 100 MG, QW2
     Route: 030
  7. HALOPERIDOL [Concomitant]
     Route: 048
  8. PROCYCLIDINE HYDROCHLORIDE 2MG TAB [Concomitant]
  9. VENLAFAXINE [Concomitant]
  10. VALPROATE SODIUM [Concomitant]
     Dosage: 1 G, BID
  11. OLANZAPINE [Concomitant]
     Dosage: 20 MG, QD
  12. RISPERIDONE [Concomitant]
     Dosage: 25 MG, QW2
     Route: 030
  13. RISPERIDONE [Concomitant]
     Dosage: 50 MG, QW2
     Route: 030

REACTIONS (1)
  - MANIA [None]
